FAERS Safety Report 4270993-4 (Version None)
Quarter: 2004Q1

REPORT INFORMATION
  Report Type: 
  Country: None (occurrence: None)
  Receive Date: 20040114
  Receipt Date: 20040109
  Transmission Date: 20041129
  Serious: Yes (Life-Threatening, Hospitalization)
  Sender: FDA-Public Use
  Company Number: WAES 0401USA00692

PATIENT
  Age: 54 Year
  Sex: Female

DRUGS (2)
  1. ZETIA [Concomitant]
     Route: 048
  2. SINGULAIR [Suspect]
     Route: 048

REACTIONS (2)
  - CONVULSION [None]
  - HEPATIC ENZYME INCREASED [None]
